FAERS Safety Report 5699737-6 (Version None)
Quarter: 2008Q2

REPORT INFORMATION
  Report Type: 
  Country: None (occurrence: None)
  Receive Date: 20080410
  Receipt Date: 20080402
  Transmission Date: 20081010
  Serious: Yes (Life-Threatening, Hospitalization, Other)
  Sender: FDA-Public Use
  Company Number: PHHY2008JP03554

PATIENT
  Age: 78 Year
  Sex: Male

DRUGS (3)
  1. NEORAL [Suspect]
     Indication: PSORIASIS
     Dosage: 200 MG /DAY
     Route: 048
     Dates: start: 20080201, end: 20080311
  2. NEORAL [Suspect]
     Dosage: 150 MG/ DAY
     Route: 048
     Dates: start: 20080312
  3. PAXIL [Suspect]
     Route: 048

REACTIONS (6)
  - DIZZINESS [None]
  - FALL [None]
  - LOSS OF CONSCIOUSNESS [None]
  - RESPIRATORY ARREST [None]
  - VERTEBRAL INJURY [None]
  - VERTIGO [None]
